FAERS Safety Report 10983990 (Version 2)
Quarter: 2015Q3

REPORT INFORMATION
  Report Type: Spontaneous
  Country: US (occurrence: None)
  Receive Date: 20150401
  Receipt Date: 20150708
  Transmission Date: 20151125
  Serious: Yes (Hospitalization)
  Sender: FDA-Public Use
  Company Number: RAP-0070-2015

PATIENT
  Age: 13 Year
  Sex: Male

DRUGS (1)
  1. PROCYSBI DELAYED-RELEASE [Suspect]
     Active Substance: CYSTEAMINE BITARTRATE
     Indication: CYSTINOSIS
     Dosage: 2100 MG (1050 MG, 1 IN 12 HR)
     Route: 048
     Dates: start: 20150209, end: 20150308

REACTIONS (3)
  - Oropharyngeal pain [None]
  - Sinusitis [None]
  - Device occlusion [None]

NARRATIVE: CASE EVENT DATE: 20150308
